FAERS Safety Report 6278424-X (Version None)
Quarter: 2009Q3

REPORT INFORMATION
  Report Type: 
  Country: None (occurrence: None)
  Receive Date: 20090722
  Receipt Date: 20090717
  Transmission Date: 20100115
  Serious: Yes (Hospitalization)
  Sender: FDA-Public Use
  Company Number: JP-EISAI INC.-E2020-04813-SPO-JP

PATIENT
  Sex: Male
  Weight: 36.5 kg

DRUGS (10)
  1. ARICEPT [Suspect]
     Indication: DEMENTIA ALZHEIMER'S TYPE
     Route: 048
     Dates: end: 20090624
  2. CYANOCOBALAMIN [Concomitant]
     Route: 048
     Dates: end: 20090715
  3. SELBEX [Concomitant]
     Route: 048
     Dates: end: 20090715
  4. NORVASC [Concomitant]
     Route: 048
     Dates: end: 20090715
  5. PARIET [Concomitant]
     Route: 048
  6. HOKUNALIN-TAPE [Concomitant]
     Dates: end: 20090625
  7. XALATAN [Concomitant]
     Route: 047
  8. HYALEIN [Concomitant]
     Route: 047
  9. AZOPT [Concomitant]
     Route: 047
  10. TIMOPTIC [Concomitant]
     Route: 046

REACTIONS (1)
  - RENAL FAILURE ACUTE [None]
